FAERS Safety Report 5109571-3 (Version None)
Quarter: 2006Q3

REPORT INFORMATION
  Report Type: 
  Country: None (occurrence: None)
  Receive Date: 20060918
  Receipt Date: 20060830
  Transmission Date: 20061208
  Serious: Yes (Hospitalization)
  Sender: FDA-Public Use
  Company Number: ES200607002086

PATIENT
  Age: 82 Year
  Sex: Female
  Weight: 60 kg

DRUGS (4)
  1. FORTEO [Suspect]
     Indication: OSTEOPOROSIS
     Dosage: 20 UG, DAILY (1/D), SUBCUTANEOUS
     Route: 058
     Dates: start: 20060505, end: 20060512
  2. FORTEO [Concomitant]
  3. CIMASCAL (CALCIUM CARBONATE) [Concomitant]
  4. ELCATONIN (ELCATONIN) [Concomitant]

REACTIONS (2)
  - DRUG INTERACTION [None]
  - HYPERCALCAEMIA [None]
